FAERS Safety Report 15615401 (Version 1)
Quarter: 2018Q4

REPORT INFORMATION
  Report Type: Report from Study
  Country: US (occurrence: US)
  Receive Date: 20181114
  Receipt Date: 20181114
  Transmission Date: 20190205
  Serious: Yes (Death, Other)
  Sender: FDA-Public Use
  Company Number: US-IPSEN BIOPHARMACEUTICALS, INC.-2018-15504

PATIENT
  Age: 64 Year
  Sex: Male

DRUGS (1)
  1. CABOMETYX [Suspect]
     Active Substance: CABOZANTINIB S-MALATE
     Indication: MYELOFIBROSIS
     Dosage: 60 MG, QD (AT 3 AM, NOTHING PER ORAL BEFORE AND AFTER)
     Route: 048
     Dates: start: 20180730, end: 2018

REACTIONS (8)
  - Death [Fatal]
  - Tongue disorder [Not Recovered/Not Resolved]
  - Dysgeusia [Not Recovered/Not Resolved]
  - Off label use [Unknown]
  - Haemoglobin decreased [Unknown]
  - Urinary tract infection [Recovered/Resolved]
  - Decreased appetite [Recovered/Resolved]
  - Diarrhoea [Recovering/Resolving]

NARRATIVE: CASE EVENT DATE: 2018
